FAERS Safety Report 16905295 (Version 2)
Quarter: 2019Q4

REPORT INFORMATION
  Report Type: Spontaneous
  Country: US (occurrence: US)
  Receive Date: 20191010
  Receipt Date: 20191114
  Transmission Date: 20200122
  Serious: No
  Sender: FDA-Public Use
  Company Number: US-SA-2019SA274732

PATIENT
  Age: 76 Year
  Sex: Male

DRUGS (27)
  1. SPIRIVA RESPIMAT [Concomitant]
     Active Substance: TIOTROPIUM BROMIDE
     Indication: ASTHMA
     Dosage: INHALE 2 PUFFS INTO LUNGS DAILY
  2. SINGULAIR [Concomitant]
     Active Substance: MONTELUKAST SODIUM
     Indication: ASTHMA
     Dosage: 1 DF, QD
  3. PRALUENT [Suspect]
     Active Substance: ALIROCUMAB
     Indication: TYPE V HYPERLIPIDAEMIA
     Dosage: 75 MG, QOW
     Route: 058
     Dates: start: 201907
  4. ASPIRIN [ACETYLSALICYLIC ACID] [Concomitant]
     Active Substance: ASPIRIN
     Dosage: 81 MG, QD
     Route: 048
  5. PULMICORT TURBUHALER [Concomitant]
     Active Substance: BUDESONIDE
     Indication: DYSPNOEA
     Dosage: INHALE 2 MLS BY NEBULIZATION 2 TIMES DAILY AS NEEDED
  6. ARAVA [Concomitant]
     Active Substance: LEFLUNOMIDE
     Dosage: 1 DF, QD
     Route: 048
  7. FLOMAX [Concomitant]
     Active Substance: TAMSULOSIN HYDROCHLORIDE
     Dosage: 0.4 MG, QD
     Route: 048
  8. AZELASTINE;FLUTICASONE [Concomitant]
     Indication: VASOMOTOR RHINITIS
  9. EPIPEN [Concomitant]
     Active Substance: EPINEPHRINE
     Indication: ANAPHYLACTIC REACTION
     Dosage: INJECT 0.3 ML INTO THE MUSCLE AS NEEDED
  10. NUCALA [Concomitant]
     Active Substance: MEPOLIZUMAB
     Dosage: 100 MG INTO SKIN ONE TIME
  11. SODIUM CHLORIDE. [Concomitant]
     Active Substance: SODIUM CHLORIDE
     Indication: HYPERSENSITIVITY
  12. CRESTOR [Concomitant]
     Active Substance: ROSUVASTATIN CALCIUM
     Dosage: 5 MG, QW
  13. PROVENTIL [Concomitant]
     Active Substance: ALBUTEROL
     Dosage: INHALE 3 MLS VIA NEBULIZER EVERY 4 HOURS AS NEEDED
  14. CARDURA [Concomitant]
     Active Substance: DOXAZOSIN MESYLATE
     Dosage: 2 MG, HS
  15. ADVAIR HFA [Concomitant]
     Active Substance: FLUTICASONE PROPIONATE\SALMETEROL XINAFOATE
     Indication: ASTHMA
     Dosage: INHALE  2 PUFFS INTO THE LUNGS 2 TIMES DAILY
  16. SODIUM CHLORIDE. [Concomitant]
     Active Substance: SODIUM CHLORIDE
     Indication: RESPIRATORY TRACT CONGESTION
     Dosage: RINSE TWICE DAILY AS NEEDED
  17. LOPID [Concomitant]
     Active Substance: GEMFIBROZIL
     Dosage: 1 DF, QD
     Route: 048
     Dates: start: 20191101
  18. FISH OIL [Concomitant]
     Active Substance: FISH OIL
     Dosage: 1 G, QD
     Route: 048
  19. GLUCOPHAGE XR [Concomitant]
     Active Substance: METFORMIN HYDROCHLORIDE
     Dosage: 500 MG, QD
     Route: 048
  20. VITAMIN D [VITAMIN D NOS] [Concomitant]
     Active Substance: VITAMIN D NOS
     Dosage: 50,000 UNITS BY MOUTH EVERY 30 DAYS
  21. ALBUTEROL HFA [Concomitant]
     Active Substance: ALBUTEROL SULFATE
     Indication: WHEEZING
     Dosage: INHALE 1-2 PUFFS INTO LUNS EVERY 4 HOURS AS NEEDED
  22. AZELASTINE;FLUTICASONE [Concomitant]
     Indication: SEASONAL ALLERGY
     Dosage: 1   SPRAY  BY NASAL  ROUTE 2 TIMES  DAILY AS NEEDED
  23. WELCHOL [Concomitant]
     Active Substance: COLESEVELAM HYDROCHLORIDE
     Indication: TYPE V HYPERLIPIDAEMIA
  24. LOPID [Concomitant]
     Active Substance: GEMFIBROZIL
     Indication: TYPE V HYPERLIPIDAEMIA
     Dosage: 1 DF, BID
  25. TOPROL XL [Concomitant]
     Active Substance: METOPROLOL SUCCINATE
     Indication: HYPERTENSION
     Dosage: 0.5 DF, QD
     Route: 048
  26. PRILOSEC [Concomitant]
     Active Substance: OMEPRAZOLE MAGNESIUM
     Dosage: 20 MG, QD
     Route: 048
  27. CENTRUM SILVER [ASCORBIC ACID;BETACAROTENE;BIOTIN;CALCIUM;CHROMIUM;COL [Concomitant]
     Dosage: 1 DF, QD
     Route: 048

REACTIONS (4)
  - Back pain [Unknown]
  - Blood bilirubin increased [Unknown]
  - Blood urea increased [Unknown]
  - Intervertebral disc protrusion [Unknown]

NARRATIVE: CASE EVENT DATE: 201909
